FAERS Safety Report 10884270 (Version 1)
Quarter: 2015Q1

REPORT INFORMATION
  Report Type: Spontaneous
  Country: US (occurrence: None)
  Receive Date: 20150227
  Receipt Date: 20150227
  Transmission Date: 20150721
  Serious: Yes (Other)
  Sender: FDA-Public Use
  Company Number: US-JNJFOC-201502050594

PATIENT
  Sex: Male

DRUGS (1)
  1. LISTERINE POCKETMIST [Suspect]
     Active Substance: EUCALYPTOL\MENTHOL\THYMOL
     Indication: PRODUCT USED FOR UNKNOWN INDICATION

REACTIONS (2)
  - Drug administration error [None]
  - Blindness unilateral [None]
